FAERS Safety Report 20053568 (Version 1)
Quarter: 2021Q4

REPORT INFORMATION
  Report Type: Spontaneous
  Country: JP (occurrence: JP)
  Receive Date: 20211110
  Receipt Date: 20211110
  Transmission Date: 20220303
  Serious: Yes (Other)
  Sender: FDA-Public Use
  Company Number: JP-DSJP-DSJ-2021-136741

PATIENT
  Age: 76 Year
  Sex: Female

DRUGS (6)
  1. OLMESARTAN MEDOXOMIL [Suspect]
     Active Substance: OLMESARTAN MEDOXOMIL
     Indication: Hypertension
     Dosage: 5MG/DAY
     Route: 065
  2. CALBLOCK [Suspect]
     Active Substance: AZELNIDIPINE
     Indication: Hypertension
     Dosage: 8MG/DAY
     Route: 065
  3. ROSUVASTATIN CALCIUM [Concomitant]
     Active Substance: ROSUVASTATIN CALCIUM
     Dosage: 2.5MG/DAY
     Route: 065
     Dates: end: 201810
  4. ROSUVASTATIN CALCIUM [Concomitant]
     Active Substance: ROSUVASTATIN CALCIUM
     Dosage: 5MG/DAY
     Route: 065
     Dates: start: 201810, end: 201901
  5. ROSUVASTATIN CALCIUM [Concomitant]
     Active Substance: ROSUVASTATIN CALCIUM
     Dosage: 20MG/DAY
     Route: 065
     Dates: start: 201901
  6. EVOLOCUMAB [Concomitant]
     Active Substance: EVOLOCUMAB
     Dosage: 420 MG, ONCE EVERY 1 MO
     Route: 058
     Dates: start: 201901

REACTIONS (6)
  - Angina unstable [Unknown]
  - Vascular stent stenosis [Unknown]
  - Angina unstable [Unknown]
  - Vascular stent stenosis [Unknown]
  - Angina unstable [Recovered/Resolved]
  - Vascular stent stenosis [Recovered/Resolved]

NARRATIVE: CASE EVENT DATE: 20181001
